FAERS Safety Report 9799984 (Version 1)
Quarter: 2014Q1

REPORT INFORMATION
  Report Type: Spontaneous
  Country: US (occurrence: US)
  Receive Date: 20140106
  Receipt Date: 20140106
  Transmission Date: 20141002
  Serious: No
  Sender: FDA-Public Use
  Company Number: US-GILEAD-2010-0030494

PATIENT
  Age: 56 Year
  Sex: Male
  Weight: 99.79 kg

DRUGS (12)
  1. LETAIRIS [Suspect]
     Indication: PULMONARY ARTERIAL HYPERTENSION
     Route: 048
  2. FUROSEMIDE [Concomitant]
  3. SPIRONOLACTONE [Concomitant]
  4. PREDNISONE [Concomitant]
  5. ACTONEL [Concomitant]
  6. METOPROLOL [Concomitant]
  7. LUNESTA [Concomitant]
  8. WARFARIN [Concomitant]
  9. OMEPRAZOLE [Concomitant]
  10. ZEGERID [Concomitant]
  11. TRIAMTERENE-HCTZ [Concomitant]
  12. CALCIUM [Concomitant]

REACTIONS (2)
  - Condition aggravated [Unknown]
  - Drug ineffective [Unknown]
